FAERS Safety Report 7434406-3 (Version None)
Quarter: 2011Q2

REPORT INFORMATION
  Report Type: 
  Country: None (occurrence: None)
  Receive Date: 20110425
  Receipt Date: 20110412
  Transmission Date: 20111010
  Serious: Yes (Other)
  Sender: FDA-Public Use
  Company Number: PHHY2011CY30628

PATIENT
  Sex: Female

DRUGS (7)
  1. ANTIBIOTICS [Concomitant]
  2. ACLASTA [Suspect]
     Dosage: 5MG/100ML/YEAR
     Route: 042
  3. CALCIUM [Concomitant]
  4. ELUAN [Concomitant]
  5. ACLASTA [Suspect]
     Indication: OSTEOPOROSIS
     Dosage: 5MG/100ML/YEAR
     Route: 042
     Dates: start: 20080301
  6. ACLASTA [Suspect]
     Dosage: 5MG/100ML/YEAR
     Route: 042
  7. ACLASTA [Suspect]
     Dosage: 5MG/100ML/YEAR
     Route: 042
     Dates: start: 20110301

REACTIONS (5)
  - TOOTHACHE [None]
  - OSTEONECROSIS OF JAW [None]
  - TOOTH ABSCESS [None]
  - PERIODONTAL DISEASE [None]
  - BONE DISORDER [None]
